FAERS Safety Report 4370729-2 (Version None)
Quarter: 2004Q2

REPORT INFORMATION
  Report Type: 
  Country: None (occurrence: None)
  Receive Date: 20040601
  Receipt Date: 20040524
  Transmission Date: 20050107
  Serious: Yes (Other)
  Sender: FDA-Public Use
  Company Number: HQWYE102725MAY04

PATIENT
  Age: 29 Year
  Sex: Female

DRUGS (2)
  1. MINOCYCLINE HCL [Suspect]
     Indication: NASOPHARYNGITIS
     Dosage: 100 MG DAILY INTRAVENOUS DRIP
     Route: 041
     Dates: start: 20040522, end: 20040522
  2. BOSMIN (EPINEPHRINE HYDROCHLORIDE) [Concomitant]

REACTIONS (1)
  - SHOCK [None]
